FAERS Safety Report 18511427 (Version 1)
Quarter: 2020Q4

REPORT INFORMATION
  Report Type: Other
  Country: CA (occurrence: CA)
  Receive Date: 20201117
  Receipt Date: 20201117
  Transmission Date: 20210114
  Serious: Yes (Life-Threatening)
  Sender: FDA-Public Use
  Company Number: CA-CELLTRION INC.-2020CA031805

PATIENT

DRUGS (16)
  1. RITUXIMAB (UNKNOWN) [Suspect]
     Active Substance: RITUXIMAB
     Dosage: 1000.0 MILLIGRAM
     Route: 042
  2. DIPHENHYDRAMINE. [Concomitant]
     Active Substance: DIPHENHYDRAMINE
     Indication: PREMEDICATION
     Dosage: 50.0 MILLIGRAM
     Route: 048
  3. PREDNISONE. [Concomitant]
     Active Substance: PREDNISONE
  4. RITUXIMAB (UNKNOWN) [Suspect]
     Active Substance: RITUXIMAB
     Indication: VASCULITIS
     Dosage: 1000.0 MILLIGRAM (DOSAGE FORM REPORTED AS: SOLUTION FOR INFUSION)
     Route: 042
  5. CYPROHEPTADINE. [Concomitant]
     Active Substance: CYPROHEPTADINE
  6. METHOTREXATE. [Concomitant]
     Active Substance: METHOTREXATE
  7. RITUXIMAB (UNKNOWN) [Suspect]
     Active Substance: RITUXIMAB
     Dosage: 1000.0 MILLIGRAM (DOSAGE FORM REPORTED AS: SOLUTION FOR INFUSION)
     Route: 042
  8. FOLIC ACID. [Concomitant]
     Active Substance: FOLIC ACID
  9. PROCYTOX [Concomitant]
     Active Substance: CYCLOPHOSPHAMIDE
  10. METHYLPREDNISOLONE. [Concomitant]
     Active Substance: METHYLPREDNISOLONE
     Indication: PREMEDICATION
     Dosage: 100.0 MILLIGRAM
     Route: 042
  11. COLCHICINE. [Concomitant]
     Active Substance: COLCHICINE
  12. REACTINE [Concomitant]
  13. RITUXIMAB (UNKNOWN) [Suspect]
     Active Substance: RITUXIMAB
     Indication: RHEUMATOID ARTHRITIS
     Dosage: 500.0 MILLIGRAM (DOSAGE FORM REPORTED AS: SOLUTION FOR INFUSION)
     Route: 042
  14. ACETAMINOPHEN. [Concomitant]
     Active Substance: ACETAMINOPHEN
     Indication: PREMEDICATION
     Dosage: 650.0 MILLIGRAM
     Route: 048
  15. HYDROXYCHLOROQUINE [Concomitant]
     Active Substance: HYDROXYCHLOROQUINE
  16. PREVACID [Concomitant]
     Active Substance: LANSOPRAZOLE

REACTIONS (7)
  - Underdose [Unknown]
  - White blood cell count decreased [Unknown]
  - Synovitis [Unknown]
  - Vasculitis [Unknown]
  - Neutropenia [Unknown]
  - Ill-defined disorder [Unknown]
  - Rheumatoid arthritis [Unknown]
